FAERS Safety Report 7225573-5 (Version None)
Quarter: 2011Q1

REPORT INFORMATION
  Report Type: 
  Country: None (occurrence: None)
  Receive Date: 20110107
  Receipt Date: 20110107
  Transmission Date: 20110831
  Serious: Yes (Hospitalization)
  Sender: FDA-Public Use
  Company Number: None

PATIENT
  Age: 46 Year
  Sex: Female
  Weight: 108.9 kg

DRUGS (10)
  1. PIOGLITAZONE [Suspect]
     Dosage: 1 DAILY BY MOUTH
     Route: 048
     Dates: start: 20100719
  2. PHENERGAN HCL [Concomitant]
  3. SYNTHROID [Concomitant]
  4. CALCIUM [Concomitant]
  5. PAMELOR [Concomitant]
  6. PERCOCET [Concomitant]
  7. NEURONTIN [Concomitant]
  8. VITAMIN D [Concomitant]
  9. NEXIUM [Concomitant]
  10. LOVASTATIN [Concomitant]

REACTIONS (1)
  - PANCREATITIS CHRONIC [None]
